FAERS Safety Report 4834158-7 (Version None)
Quarter: 2005Q4

REPORT INFORMATION
  Report Type: 
  Country: None (occurrence: None)
  Receive Date: 20051122
  Receipt Date: 20051118
  Transmission Date: 20060501
  Serious: Yes (Other)
  Sender: FDA-Public Use
  Company Number: US-GLAXOSMITHKLINE-A0582829A

PATIENT
  Age: 72 Year
  Sex: Female

DRUGS (8)
  1. TUMS [Suspect]
     Indication: MINERAL SUPPLEMENTATION
     Route: 048
  2. TUMS E-X TABLETS [Suspect]
     Indication: DYSPEPSIA
     Dates: start: 20040101
  3. TUMS ULTRA [Suspect]
     Indication: DYSPEPSIA
     Route: 048
     Dates: start: 20040101
  4. PRILOSEC [Concomitant]
  5. HYDROCHLOROTHIAZIDE [Concomitant]
  6. VITAMINS [Concomitant]
  7. DOCUSATE SODIUM [Concomitant]
  8. ASPIRIN [Concomitant]

REACTIONS (3)
  - CYSTITIS [None]
  - NEPHROLITHIASIS [None]
  - URINARY INCONTINENCE [None]
